FAERS Safety Report 10172653 (Version 2)
Quarter: 2014Q2

REPORT INFORMATION
  Report Type: Report from Study
  Country: VE (occurrence: VE)
  Receive Date: 20140515
  Receipt Date: 20140515
  Transmission Date: 20141212
  Serious: Yes (Hospitalization, Other)
  Sender: FDA-Public Use
  Company Number: VE-ABBVIE-13P-178-1095564-00

PATIENT
  Age: 47 Year
  Sex: Female
  Weight: 82 kg

DRUGS (2)
  1. HUMIRA [Suspect]
     Indication: RHEUMATOID ARTHRITIS
     Route: 058
     Dates: start: 20100525, end: 201211
  2. HUMIRA [Suspect]
     Route: 058
     Dates: start: 20130115, end: 201404

REACTIONS (3)
  - Bone deformity [Recovered/Resolved]
  - Knee operation [Recovered/Resolved]
  - Hypertension [Unknown]
